FAERS Safety Report 5278267-X (Version None)
Quarter: 2007Q1

REPORT INFORMATION
  Report Type: 
  Country: None (occurrence: None)
  Receive Date: 20070328
  Receipt Date: 20070316
  Transmission Date: 20070707
  Serious: Yes (Other)
  Sender: FDA-Public Use
  Company Number: PHNU2007DE01237

PATIENT
  Age: 64 Year
  Sex: Male

DRUGS (2)
  1. BELOC [Concomitant]
     Indication: HYPERTENSION
  2. VALSARTAN AND HYDROCHLOROTHIAZIDE [Suspect]
     Indication: HYPERTENSION
     Dosage: 1 DF, QD
     Route: 048

REACTIONS (1)
  - BRADYARRHYTHMIA [None]
